FAERS Safety Report 13407377 (Version 1)
Quarter: 2017Q2

REPORT INFORMATION
  Report Type: Report from Study
  Country: None (occurrence: IT)
  Receive Date: 20170405
  Receipt Date: 20170405
  Transmission Date: 20170830
  Serious: Yes (Death)
  Sender: FDA-Public Use
  Company Number: IT-ABBVIE-17P-083-1927371-00

PATIENT
  Sex: Male
  Weight: 60 kg

DRUGS (1)
  1. DUODOPA [Suspect]
     Active Substance: CARBIDOPA\LEVODOPA
     Indication: PARKINSON^S DISEASE
     Dosage: MD 7 +3??CR 2,4??ED 5
     Route: 050
     Dates: start: 20140521, end: 20170321

REACTIONS (2)
  - Pneumonia aspiration [Fatal]
  - Condition aggravated [Fatal]
